FAERS Safety Report 17571512 (Version 1)
Quarter: 2020Q1

REPORT INFORMATION
  Report Type: Spontaneous
  Country: TR (occurrence: TR)
  Receive Date: 20200323
  Receipt Date: 20200323
  Transmission Date: 20200409
  Serious: Yes (Other)
  Sender: FDA-Public Use
  Company Number: ALCN2013TR003601

PATIENT
  Age: 3 Month
  Sex: Female

DRUGS (4)
  1. MYDFRIN [Suspect]
     Active Substance: PHENYLEPHRINE HYDROCHLORIDE
     Indication: OPHTHALMOLOGICAL EXAMINATION
     Dosage: 1 GTT, QD
     Route: 047
  2. PHENYLEPHRINE TANNATE [Suspect]
     Active Substance: PHENYLEPHRINE TANNATE
     Indication: PRODUCT USED FOR UNKNOWN INDICATION
     Dosage: 1 DROP IN THE EYE
     Route: 047
  3. KETAMINE [Suspect]
     Active Substance: KETAMINE
     Indication: LASER THERAPY
     Dosage: UNK
     Route: 065
  4. CYCLOPENTOLATE 0.5% EYE DROPS [Suspect]
     Active Substance: CYCLOPENTOLATE
     Indication: OPHTHALMOLOGICAL EXAMINATION
     Dosage: 1 DROP IN THE EYE
     Route: 047

REACTIONS (1)
  - Myoclonic epilepsy [Recovered/Resolved]
